FAERS Safety Report 8312504-X (Version None)
Quarter: 2012Q2

REPORT INFORMATION
  Report Type: 
  Country: None (occurrence: None)
  Receive Date: 20120425
  Receipt Date: 20120418
  Transmission Date: 20120825
  Serious: Yes (Hospitalization, Disabling, Other)
  Sender: FDA-Public Use
  Company Number: US-MERCK-1111USA01292

PATIENT
  Age: 53 Year
  Sex: Female
  Weight: 72 kg

DRUGS (4)
  1. ALENDRONATE SODIUM [Suspect]
     Indication: OSTEOPOROSIS
     Route: 048
     Dates: start: 20080703, end: 20100401
  2. FOSAMAX PLUS D [Suspect]
     Indication: OSTEOPOROSIS
     Route: 048
     Dates: start: 20070309, end: 20080601
  3. FOSAMAX [Suspect]
     Indication: OSTEOPOROSIS
     Route: 048
     Dates: start: 19980105, end: 20010101
  4. FOSAMAX [Suspect]
     Route: 048
     Dates: start: 20010101, end: 20070301

REACTIONS (36)
  - FALL [None]
  - EPISTAXIS [None]
  - TONSILLAR DISORDER [None]
  - CRANIOCEREBRAL INJURY [None]
  - WEIGHT INCREASED [None]
  - ARTHRALGIA [None]
  - LOW TURNOVER OSTEOPATHY [None]
  - ARTHRITIS [None]
  - UPPER RESPIRATORY TRACT INFECTION [None]
  - SKIN DISORDER [None]
  - FEMUR FRACTURE [None]
  - FATIGUE [None]
  - VERTIGO [None]
  - CONCUSSION [None]
  - FOOT FRACTURE [None]
  - HAEMORRHAGE [None]
  - DEPRESSION [None]
  - DIARRHOEA [None]
  - DIVERTICULUM [None]
  - ARTHROPATHY [None]
  - GINGIVAL BLEEDING [None]
  - SPINAL OSTEOARTHRITIS [None]
  - LACERATION [None]
  - OSTEOARTHRITIS [None]
  - PAIN [None]
  - VOMITING [None]
  - TOOTH DISORDER [None]
  - DRUG HYPERSENSITIVITY [None]
  - FACIAL BONES FRACTURE [None]
  - NAUSEA [None]
  - ACCIDENT AT WORK [None]
  - GOITRE [None]
  - SENSITIVITY OF TEETH [None]
  - HYPERLIPIDAEMIA [None]
  - JAW FRACTURE [None]
  - FRACTURE [None]
